FAERS Safety Report 17654940 (Version 1)
Quarter: 2020Q2

REPORT INFORMATION
  Report Type: Spontaneous
  Country: US (occurrence: US)
  Receive Date: 20200410
  Receipt Date: 20200410
  Transmission Date: 20200713
  Serious: Yes (Other)
  Sender: FDA-Public Use
  Company Number: US-ASTRAZENECA-2020SE48016

PATIENT

DRUGS (1)
  1. NEXIUM [Suspect]
     Active Substance: ESOMEPRAZOLE MAGNESIUM
     Dosage: FOR VARIOUS DATES AND YEARS INCLUDING, BUT NOT LIMITED TO 2013 THROUGH 2019.
     Route: 048

REACTIONS (3)
  - Chronic kidney disease [Unknown]
  - Rebound acid hypersecretion [Unknown]
  - Renal failure [Unknown]
